FAERS Safety Report 24600284 (Version 6)
Quarter: 2025Q1

REPORT INFORMATION
  Report Type: Spontaneous
  Country: US (occurrence: US)
  Receive Date: 20241110
  Receipt Date: 20250323
  Transmission Date: 20250408
  Serious: Yes (Hospitalization, Other)
  Sender: SANOFI AVENTIS
  Company Number: US-SA-2024SA315749

PATIENT
  Age: 60 Year
  Sex: Male

DRUGS (1)
  1. DUPIXENT [Suspect]
     Active Substance: DUPILUMAB
     Indication: Eosinophilic oesophagitis
     Dosage: 300 MG, QW
     Route: 058
     Dates: start: 202409

REACTIONS (11)
  - Pulmonary artery stent insertion [Recovered/Resolved]
  - Oesophageal food impaction [Recovered/Resolved]
  - Dysphagia [Recovered/Resolved]
  - Pain [Not Recovered/Not Resolved]
  - Joint stiffness [Recovering/Resolving]
  - Condition aggravated [Recovering/Resolving]
  - Injection site urticaria [Unknown]
  - Arthralgia [Recovering/Resolving]
  - Eosinophilic oesophagitis [Recovering/Resolving]
  - Incorrect route of product administration [Unknown]
  - Inappropriate schedule of product administration [Unknown]

NARRATIVE: CASE EVENT DATE: 20240101
